FAERS Safety Report 17925526 (Version 5)
Quarter: 2020Q4

REPORT INFORMATION
  Report Type: Spontaneous
  Country: JP (occurrence: JP)
  Receive Date: 20200623
  Receipt Date: 20201006
  Transmission Date: 20210113
  Serious: Yes (Other)
  Sender: FDA-Public Use
  Company Number: JP-BRISTOL-MYERS SQUIBB COMPANY-BMS-2020-048870

PATIENT
  Age: 70 Year
  Sex: Female

DRUGS (3)
  1. OPDIVO [Suspect]
     Active Substance: NIVOLUMAB
     Dosage: NUMBER OF SEPARATE DOSAGES: 1, NUMBER OF UNITS IN THE INTERVAL: 2, Q2W
     Route: 041
  2. YERVOY [Suspect]
     Active Substance: IPILIMUMAB
     Indication: MALIGNANT MELANOMA
     Dosage: 3 MILLIGRAM, Q3WK
     Route: 041
  3. OPDIVO [Suspect]
     Active Substance: NIVOLUMAB
     Indication: MALIGNANT MELANOMA
     Dosage: 80 MILLIGRAM, Q2WK
     Route: 041

REACTIONS (6)
  - Cholangitis [Recovering/Resolving]
  - Thyroid disorder [Not Recovered/Not Resolved]
  - Interstitial lung disease [Recovered/Resolved]
  - Hypopituitarism [Unknown]
  - Enterocolitis [Recovered/Resolved]
  - Hepatitis [Recovered/Resolved]
